FAERS Safety Report 4343030-0 (Version None)
Quarter: 2004Q2

REPORT INFORMATION
  Report Type: 
  Country: None (occurrence: None)
  Receive Date: 20040421
  Receipt Date: 20040329
  Transmission Date: 20050107
  Serious: Yes (Life-Threatening)
  Sender: FDA-Public Use
  Company Number: FR-ROCHE-363309

PATIENT
  Age: 56 Year
  Sex: Male

DRUGS (6)
  1. INTERFERON ALFA-2A [Suspect]
     Route: 058
     Dates: start: 20020207, end: 20021121
  2. RITUXIMAB [Suspect]
     Dosage: INTRODUCED AT DAY 1 AND 8 OF THE 3RD CYCLE (04.04.02), 4TH CYCLE (03.05.02), 5TH CYCLE (31.05.02) A+
     Route: 042
     Dates: start: 20020404, end: 20020628
  3. VEPESID [Suspect]
     Route: 042
     Dates: start: 20020207, end: 20020628
  4. CYCLOPHOSPHAMIDE [Suspect]
     Route: 042
  5. PREDNISONE [Suspect]
     Route: 048
     Dates: start: 20020207, end: 20020628
  6. ADRIBLASTINE [Suspect]
     Route: 042
     Dates: start: 20020207, end: 20020628

REACTIONS (1)
  - LUNG NEOPLASM MALIGNANT [None]
